FAERS Safety Report 9950637 (Version 2)
Quarter: 2014Q1

REPORT INFORMATION
  Report Type: Report from Study
  Country: US (occurrence: US)
  Receive Date: 20140304
  Receipt Date: 20140304
  Transmission Date: 20141002
  Serious: No
  Sender: FDA-Public Use
  Company Number: US-ABBVIE-13P-163-1065011-00

PATIENT
  Age: 58 Year
  Sex: Female

DRUGS (11)
  1. HUMIRA [Suspect]
     Indication: RHEUMATOID ARTHRITIS
     Route: 058
     Dates: start: 20121105, end: 20130307
  2. HUMIRA [Suspect]
     Route: 058
     Dates: start: 20130307
  3. METHOTREXATE [Concomitant]
     Indication: PRODUCT USED FOR UNKNOWN INDICATION
     Dosage: 5 OF 2.5MG PILLS
  4. METHOTREXATE [Concomitant]
     Dosage: 7 OF 2.5MG PILLS
  5. LORTAB [Concomitant]
     Indication: FIBROMYALGIA
     Dosage: 5/500MG DAILY
  6. FOLIC ACID [Concomitant]
     Indication: PRODUCT USED FOR UNKNOWN INDICATION
  7. PREDNISONE [Concomitant]
     Indication: PRODUCT USED FOR UNKNOWN INDICATION
     Dosage: 10MG
  8. PREDNISONE [Concomitant]
     Dosage: 7.5
  9. PREDNISONE [Concomitant]
     Dosage: 5MG DAILY
  10. CORGARD [Concomitant]
     Indication: HEART RATE IRREGULAR
     Dosage: 10MG
  11. CALCIUM + VITAMIN D [Concomitant]
     Indication: OSTEOPENIA

REACTIONS (6)
  - Cough [Not Recovered/Not Resolved]
  - Rheumatoid arthritis [Recovering/Resolving]
  - Arthralgia [Recovering/Resolving]
  - Arthralgia [Recovered/Resolved]
  - Drug ineffective [Recovered/Resolved]
  - Nasopharyngitis [Not Recovered/Not Resolved]
